FAERS Safety Report 16202555 (Version 2)
Quarter: 2019Q3

REPORT INFORMATION
  Report Type: Spontaneous
  Country: US (occurrence: US)
  Receive Date: 20190416
  Receipt Date: 20190910
  Transmission Date: 20191004
  Serious: No
  Sender: FDA-Public Use
  Company Number: US-SA-2019SA104707

PATIENT
  Age: 21 Year
  Sex: Female
  Weight: 58.96 kg

DRUGS (1)
  1. DUPIXENT [Suspect]
     Active Substance: DUPILUMAB
     Indication: ASTHMA
     Dosage: 300 MG, QOW
     Route: 058
     Dates: start: 201907

REACTIONS (3)
  - Influenza [Unknown]
  - Rash [Unknown]
  - Asthma [Unknown]

NARRATIVE: CASE EVENT DATE: 201903
